FAERS Safety Report 22902015 (Version 6)
Quarter: 2025Q3

REPORT INFORMATION
  Report Type: Spontaneous
  Country: US (occurrence: US)
  Receive Date: 20230904
  Receipt Date: 20250924
  Transmission Date: 20251021
  Serious: Yes (Other)
  Sender: SANOFI AVENTIS
  Company Number: US-SA-SAC20230901000450

PATIENT
  Age: 41 Year
  Sex: Female

DRUGS (1)
  1. DUPIXENT [Suspect]
     Active Substance: DUPILUMAB
     Indication: Dermatitis atopic
     Dosage: 300 MG, QOW
     Route: 058

REACTIONS (11)
  - Loss of consciousness [Unknown]
  - Hypotension [Unknown]
  - Phlebitis [Unknown]
  - Ocular discomfort [Unknown]
  - Eye disorder [Unknown]
  - Acne [Unknown]
  - Inappropriate schedule of product administration [Unknown]
  - Hypertension [Unknown]
  - Headache [Unknown]
  - Eye irritation [Not Recovered/Not Resolved]
  - Incorrect route of product administration [Unknown]

NARRATIVE: CASE EVENT DATE: 20230803
